FAERS Safety Report 14360133 (Version 2)
Quarter: 2018Q1

REPORT INFORMATION
  Report Type: Spontaneous
  Country: JP (occurrence: JP)
  Receive Date: 20180106
  Receipt Date: 20180124
  Transmission Date: 20180509
  Serious: Yes (Life-Threatening, Other)
  Sender: FDA-Public Use
  Company Number: JP-ACCORD-062568

PATIENT
  Age: 55 Year
  Sex: Female

DRUGS (2)
  1. CARBOPLATIN. [Suspect]
     Active Substance: CARBOPLATIN
     Indication: LYMPHADENOPATHY MEDIASTINAL
     Dates: start: 200808, end: 200811
  2. PACLITAXEL/PACLITAXEL LIPOSOME [Suspect]
     Active Substance: PACLITAXEL
     Indication: LYMPHADENOPATHY MEDIASTINAL
     Dates: start: 200808, end: 200811

REACTIONS (2)
  - Drug ineffective [Unknown]
  - Drug resistance [Unknown]
